FAERS Safety Report 20949767 (Version 1)
Quarter: 2022Q2

REPORT INFORMATION
  Report Type: Spontaneous
  Country: US (occurrence: US)
  Receive Date: 20220613
  Receipt Date: 20220613
  Transmission Date: 20220720
  Serious: No
  Sender: FDA-Public Use
  Company Number: US-009507513-2206USA001755

PATIENT
  Age: 86 Year
  Sex: Male

DRUGS (1)
  1. MOLNUPIRAVIR [Suspect]
     Active Substance: MOLNUPIRAVIR
     Dosage: 4 PILLS
     Route: 048

REACTIONS (2)
  - Accidental underdose [Unknown]
  - No adverse event [Unknown]

NARRATIVE: CASE EVENT DATE: 20220605
